FAERS Safety Report 4588142-1 (Version None)
Quarter: 2005Q1

REPORT INFORMATION
  Report Type: 
  Country: None (occurrence: None)
  Receive Date: 20050221
  Receipt Date: 20050214
  Transmission Date: 20050727
  Serious: Yes (Hospitalization, Disabling)
  Sender: FDA-Public Use
  Company Number: PHFR2005GB00888

PATIENT
  Age: 63 Year
  Sex: Female

DRUGS (5)
  1. CYCLOSPORINE [Suspect]
     Indication: PEMPHIGOID
     Dosage: 125 MG, BID
     Route: 048
     Dates: start: 20040901
  2. WARFARIN SODIUM [Concomitant]
     Indication: PULMONARY EMBOLISM
     Dosage: VARIABLE
     Route: 048
     Dates: end: 20050121
  3. METHOTREXATE [Concomitant]
     Dosage: 10MG/WEEKLY
     Route: 048
  4. FOLIC ACID [Concomitant]
     Indication: PEMPHIGOID
     Dosage: 5MG/WEEKLY
     Route: 048
  5. LANSOPRAZOLE [Concomitant]
     Dosage: 15 MG, QD
     Route: 048

REACTIONS (2)
  - BLOOD PRESSURE INCREASED [None]
  - CEREBRAL HAEMORRHAGE [None]
